FAERS Safety Report 9905038 (Version 3)
Quarter: 2014Q3

REPORT INFORMATION
  Report Type: Spontaneous
  Country: CA (occurrence: None)
  Receive Date: 20140211
  Receipt Date: 20140801
  Transmission Date: 20150326
  Serious: Yes (Hospitalization)
  Sender: FDA-Public Use
  Company Number: CA-014594

PATIENT
  Age: 90 Year
  Sex: Male

DRUGS (4)
  1. LIPITOR [Concomitant]
     Active Substance: ATORVASTATIN CALCIUM
  2. FIRMAGON [Suspect]
     Active Substance: DEGARELIX ACETATE
     Indication: PROSTATE CANCER
     Route: 058
     Dates: start: 20131107, end: 20131107
  3. COVERSYL ARGI PLUS [Concomitant]
  4. NITROGLYCERINE [Concomitant]
     Active Substance: NITROGLYCERIN

REACTIONS (9)
  - Flank pain [None]
  - Bladder disorder [None]
  - Prostatic specific antigen increased [None]
  - Spinal compression fracture [None]
  - Myocardial infarction [None]
  - Haematuria [None]
  - Constipation [None]
  - Urinary tract infection [None]
  - Prostate cancer [None]

NARRATIVE: CASE EVENT DATE: 20140102
